FAERS Safety Report 11280228 (Version 1)
Quarter: 2015Q3

REPORT INFORMATION
  Report Type: Spontaneous
  Country: US (occurrence: US)
  Receive Date: 20150717
  Receipt Date: 20150717
  Transmission Date: 20151125
  Serious: Yes (Other)
  Sender: FDA-Public Use
  Company Number: US-JNJFOC-20131217101

PATIENT
  Age: 75 Year
  Sex: Male

DRUGS (2)
  1. CLADRIBINE. [Suspect]
     Active Substance: CLADRIBINE
     Indication: HAIRY CELL LEUKAEMIA
     Dosage: 2-HOUR INTRAVENOUS INFUSION, 0.15 MG/KG FOR DAYS 1 TO 5, 5 DAILY DOSES
     Route: 042
  2. RITUXIMAB [Suspect]
     Active Substance: RITUXIMAB
     Indication: HAIRY CELL LEUKAEMIA
     Dosage: DAY 1, 8
     Route: 065

REACTIONS (10)
  - Incorrect dose administered [Unknown]
  - Rhinitis [Unknown]
  - Lymphopenia [Recovered/Resolved]
  - Rash [Unknown]
  - Nausea [Unknown]
  - Pyrexia [Unknown]
  - Thrombocytopenia [Recovered/Resolved]
  - Flushing [Unknown]
  - Chills [Unknown]
  - Vomiting [Unknown]
